FAERS Safety Report 6678886-X (Version None)
Quarter: 2010Q2

REPORT INFORMATION
  Report Type: 
  Country: None (occurrence: None)
  Receive Date: 20100409
  Receipt Date: 20100326
  Transmission Date: 20101027
  Serious: Yes (Death)
  Sender: FDA-Public Use
  Company Number: 006935

PATIENT
  Sex: Female
  Weight: 70 kg

DRUGS (3)
  1. VIMPAT [Suspect]
     Indication: EPILEPSY
     Dosage: 200 MG BID ORAL
     Route: 048
  2. PHENYTOIN [Concomitant]
     Indication: EPILEPSY
     Dosage: 100 MG TID ORAL
     Route: 048
  3. ERGENYL (ERGENYL) (NOT SPECIFIED) [Suspect]
     Indication: EPILEPSY
     Dosage: 1000 MG BID ORAL
     Route: 048

REACTIONS (1)
  - DEATH [None]
